FAERS Safety Report 5504198-3 (Version None)
Quarter: 2007Q4

REPORT INFORMATION
  Report Type: 
  Country: None (occurrence: None)
  Receive Date: 20071101
  Receipt Date: 20071023
  Transmission Date: 20080405
  Serious: Yes (Death)
  Sender: FDA-Public Use
  Company Number: B0491377A

PATIENT
  Age: 42 Year
  Sex: Male

DRUGS (2)
  1. ROSIGLITAZONE [Suspect]
     Dosage: 8MG PER DAY
     Route: 048
  2. UNSPECIFIED MEDICATION [Concomitant]
     Route: 065

REACTIONS (1)
  - SUDDEN DEATH [None]
